FAERS Safety Report 14352574 (Version 1)
Quarter: 2018Q1

REPORT INFORMATION
  Report Type: Spontaneous
  Country: US (occurrence: US)
  Receive Date: 20180104
  Receipt Date: 20180104
  Transmission Date: 20180509
  Serious: No
  Sender: FDA-Public Use
  Company Number: US-JAZZ-2017-US-015194

PATIENT
  Sex: Female

DRUGS (2)
  1. XYREM [Suspect]
     Active Substance: SODIUM OXYBATE
     Dosage: REDUCED XYREM DOSE TO ONCE A NIGHT
     Route: 048
  2. XYREM [Suspect]
     Active Substance: SODIUM OXYBATE
     Indication: PRODUCT USED FOR UNKNOWN INDICATION
     Dosage: UNKNOWN DOSE
     Route: 048

REACTIONS (1)
  - Feeling abnormal [Unknown]
